FAERS Safety Report 24945568 (Version 4)
Quarter: 2025Q2

REPORT INFORMATION
  Report Type: Spontaneous
  Country: US (occurrence: US)
  Receive Date: 20250209
  Receipt Date: 20250415
  Transmission Date: 20250717
  Serious: No
  Sender: SANOFI AVENTIS
  Company Number: US-SA-2025SA038810

PATIENT
  Age: 72 Year
  Sex: Male

DRUGS (2)
  1. DUPIXENT [Suspect]
     Active Substance: DUPILUMAB
     Indication: Dermatitis atopic
     Route: 058
     Dates: start: 20241216, end: 20241216
  2. DUPIXENT [Suspect]
     Active Substance: DUPILUMAB
     Dosage: 300 MG, QOW
     Route: 058
     Dates: start: 202412, end: 20250127

REACTIONS (6)
  - Erythema [Unknown]
  - Condition aggravated [Unknown]
  - Dermatitis atopic [Unknown]
  - Arthralgia [Unknown]
  - Rash [Not Recovered/Not Resolved]
  - Pruritus [Not Recovered/Not Resolved]

NARRATIVE: CASE EVENT DATE: 20250101
